FAERS Safety Report 17555353 (Version 2)
Quarter: 2020Q3

REPORT INFORMATION
  Report Type: Report from Study
  Country: None (occurrence: US)
  Receive Date: 20200318
  Receipt Date: 20200826
  Transmission Date: 20201102
  Serious: Yes (Other)
  Sender: FDA-Public Use
  Company Number: US-ABBVIE-20K-163-3324985-00

PATIENT
  Sex: Male

DRUGS (1)
  1. HUMIRA [Suspect]
     Active Substance: ADALIMUMAB
     Indication: PSORIASIS
     Route: 058

REACTIONS (8)
  - Precancerous skin lesion [Unknown]
  - Atrial fibrillation [Unknown]
  - Sunburn [Unknown]
  - Myocardial infarction [Unknown]
  - Sleep apnoea syndrome [Unknown]
  - Arthralgia [Unknown]
  - Squamous cell carcinoma [Unknown]
  - Psoriasis [Unknown]

NARRATIVE: CASE EVENT DATE: 2012
